FAERS Safety Report 7156442-7 (Version None)
Quarter: 2010Q4

REPORT INFORMATION
  Report Type: 
  Country: None (occurrence: None)
  Receive Date: 20101214
  Receipt Date: 20101207
  Transmission Date: 20110411
  Serious: Yes (Hospitalization)
  Sender: FDA-Public Use
  Company Number: FR-ROCHE-747443

PATIENT
  Sex: Female

DRUGS (5)
  1. HERCEPTIN [Suspect]
     Indication: BREAST CANCER
     Dosage: 150 MG; POWDER FOR DRIP SOLUTION
     Route: 042
  2. TAXOL [Suspect]
     Indication: BREAST CANCER
     Route: 042
  3. PHENERGAN [Concomitant]
     Indication: URTICARIA
     Dosage: 2.5% INJECTABLE SOLUTION
     Route: 042
  4. RANITIDINE HCL [Concomitant]
     Route: 042
  5. SOLU-MEDROL [Concomitant]
     Dosage: 120MG/2ML, LYOPHILISED; PARENTRAL
     Route: 042

REACTIONS (4)
  - DIZZINESS [None]
  - DYSARTHRIA [None]
  - DYSPHAGIA [None]
  - PARALYSIS [None]
